FAERS Safety Report 22531896 (Version 1)
Quarter: 2023Q2

REPORT INFORMATION
  Report Type: Spontaneous
  Country: PT (occurrence: PT)
  Receive Date: 20230607
  Receipt Date: 20230607
  Transmission Date: 20230722
  Serious: Yes (Hospitalization)
  Sender: FDA-Public Use
  Company Number: PT-JNJFOC-20230600905

PATIENT
  Age: 4 Decade
  Sex: Female

DRUGS (2)
  1. IBUPROFEN\PSEUDOEPHEDRINE HYDROCHLORIDE [Suspect]
     Active Substance: IBUPROFEN\PSEUDOEPHEDRINE HYDROCHLORIDE
     Indication: Oropharyngeal pain
     Dosage: 2 TABLETS, IN ONE SERVING AT 8:00 AM
     Route: 065
     Dates: start: 20230525, end: 20230526
  2. IBUPROFEN\PSEUDOEPHEDRINE HYDROCHLORIDE [Suspect]
     Active Substance: IBUPROFEN\PSEUDOEPHEDRINE HYDROCHLORIDE
     Indication: Nasal congestion

REACTIONS (1)
  - Soft tissue infection [Unknown]

NARRATIVE: CASE EVENT DATE: 20230525
